FAERS Safety Report 23611363 (Version 2)
Quarter: 2024Q3

REPORT INFORMATION
  Report Type: Spontaneous
  Country: PT (occurrence: PT)
  Receive Date: 20240308
  Receipt Date: 20240723
  Transmission Date: 20241017
  Serious: Yes (Other)
  Sender: JOHNSON AND JOHNSON
  Company Number: PT-JNJFOC-20240284821

PATIENT
  Sex: Male

DRUGS (1)
  1. TECVAYLI [Suspect]
     Active Substance: TECLISTAMAB-CQYV
     Indication: Product used for unknown indication
     Route: 065

REACTIONS (6)
  - Shock haemorrhagic [Unknown]
  - Seizure [Unknown]
  - Muscle rupture [Unknown]
  - Hypotension [Unknown]
  - Pain in extremity [Unknown]
  - Anaemia [Unknown]
